FAERS Safety Report 6958391-3 (Version None)
Quarter: 2010Q3

REPORT INFORMATION
  Report Type: 
  Country: None (occurrence: None)
  Receive Date: 20100830
  Receipt Date: 20100830
  Transmission Date: 20110219
  Serious: Yes (Hospitalization)
  Sender: FDA-Public Use
  Company Number: None

PATIENT
  Sex: Male
  Weight: 79 kg

DRUGS (3)
  1. CYTARABINE [Suspect]
     Dosage: 1323 MG
     Dates: end: 20100713
  2. DAUNORUBICIN HCL [Suspect]
     Dosage: 510 MG
     Dates: end: 20100709
  3. ETOPOSIDE [Suspect]
     Dosage: 567 MG
     Dates: end: 20100709

REACTIONS (3)
  - APPENDICITIS [None]
  - HYPOPHOSPHATAEMIA [None]
  - INCISION SITE PAIN [None]
